FAERS Safety Report 5625759-7 (Version None)
Quarter: 2008Q1

REPORT INFORMATION
  Report Type: 
  Country: None (occurrence: None)
  Receive Date: 20080214
  Receipt Date: 20080208
  Transmission Date: 20080703
  Serious: Yes (Life-Threatening, Hospitalization, Other)
  Sender: FDA-Public Use
  Company Number: A0653958B

PATIENT
  Sex: Female
  Weight: 3 kg

DRUGS (5)
  1. LAMOTRIGINE [Suspect]
     Indication: BIPOLAR DISORDER
     Dates: start: 20070124
  2. FOLIC ACID [Concomitant]
  3. VITAMIN CAP [Concomitant]
  4. ADDERALL 10 [Concomitant]
     Indication: ATTENTION DEFICIT/HYPERACTIVITY DISORDER
     Dosage: 5MG TWICE PER DAY
     Dates: start: 20060501, end: 20061206
  5. ZOLOFT [Concomitant]
     Indication: BIPOLAR DISORDER
     Dosage: 100MG PER DAY
     Dates: start: 20040701

REACTIONS (7)
  - APNOEA [None]
  - ASPHYXIA [None]
  - CYANOSIS [None]
  - DRUG EXPOSURE DURING PREGNANCY [None]
  - POLYCYTHAEMIA [None]
  - PREMATURE BABY [None]
  - UMBILICAL CORD ABNORMALITY [None]
